FAERS Safety Report 7498733-6 (Version None)
Quarter: 2011Q2

REPORT INFORMATION
  Report Type: 
  Country: None (occurrence: None)
  Receive Date: 20110524
  Receipt Date: 20110517
  Transmission Date: 20111010
  Serious: Yes (Life-Threatening, Hospitalization)
  Sender: FDA-Public Use
  Company Number: AT-ELI_LILLY_AND_COMPANY-AT201105005894

PATIENT
  Age: 41 Year
  Sex: Male

DRUGS (10)
  1. OXAZEPAM [Concomitant]
     Dosage: 30 MG, UNK
     Dates: start: 20100505, end: 20100509
  2. RISPERDAL [Concomitant]
     Dosage: 2 MG, UNK
     Dates: start: 20100525
  3. OXAZEPAM [Concomitant]
     Dosage: 60 MG, UNK
     Dates: start: 20100420, end: 20100427
  4. OXAZEPAM [Concomitant]
     Dosage: 15 MG, UNK
     Dates: start: 20100510, end: 20100528
  5. OXAZEPAM [Concomitant]
     Dosage: 22.5 MG, UNK
     Dates: start: 20100529
  6. ZYPREXA [Suspect]
     Dosage: 2.5 MG, QD
     Dates: start: 20100512, end: 20100516
  7. CYMBALTA [Suspect]
     Dosage: 60 MG, QD
     Dates: start: 20100415
  8. OXAZEPAM [Concomitant]
     Dosage: 100 MG, UNK
     Dates: start: 20100414, end: 20100419
  9. ZYPREXA [Suspect]
     Dosage: 10 MG, QD
     Dates: start: 20100414, end: 20100511
  10. OXAZEPAM [Concomitant]
     Dosage: 45 MG, UNK
     Dates: start: 20100428, end: 20100504

REACTIONS (4)
  - GAMMA-GLUTAMYLTRANSFERASE INCREASED [None]
  - ALANINE AMINOTRANSFERASE INCREASED [None]
  - BLOOD TRIGLYCERIDES INCREASED [None]
  - ASPARTATE AMINOTRANSFERASE INCREASED [None]
